FAERS Safety Report 6386300-7 (Version None)
Quarter: 2009Q4

REPORT INFORMATION
  Report Type: 
  Country: None (occurrence: None)
  Receive Date: 20091002
  Receipt Date: 20090924
  Transmission Date: 20100525
  Serious: Yes (Death, Life-Threatening)
  Sender: FDA-Public Use
  Company Number: US-AVENTIS-200915820EU

PATIENT
  Age: 61 Year
  Sex: Female
  Weight: 107 kg

DRUGS (37)
  1. LASIX [Suspect]
     Route: 048
     Dates: start: 20081108
  2. LORAZEPAM [Concomitant]
     Dates: start: 20090424, end: 20090424
  3. LORAZEPAM [Concomitant]
     Dates: start: 20090427
  4. DILANTIN [Concomitant]
     Dates: start: 20090425
  5. PHENYTOIN [Concomitant]
     Dates: start: 20090425, end: 20090425
  6. ACETAMINOPHEN [Concomitant]
     Dates: start: 20090416
  7. CEPHALEXIN [Concomitant]
     Dates: start: 20090416
  8. CODE UNBROKEN [Concomitant]
     Dosage: DOSE: LOADING DOSE 40MG
     Route: 048
     Dates: start: 20080906
  9. CODE UNBROKEN [Concomitant]
     Route: 048
     Dates: start: 20081006, end: 20090424
  10. PROPOXYPHENE NAPSYLATE             /00018802/ [Concomitant]
     Dates: start: 20090416
  11. PHENAZOPYRIDINE HCL TAB [Concomitant]
     Dates: start: 20090416
  12. AZITHROMYCIN [Concomitant]
     Dates: start: 20090330, end: 20090403
  13. LEXAPRO [Concomitant]
     Dates: start: 20090119
  14. CARVEDILOL [Concomitant]
     Dates: start: 20090118
  15. MAGNESIUM OXIDE [Concomitant]
     Dates: start: 20090118
  16. RANOLAZINE [Concomitant]
     Dates: start: 20090118
  17. BUMETANIDE [Concomitant]
     Dates: start: 20090117
  18. DIGOXIN [Concomitant]
     Dates: start: 20090117
  19. SIMVASTATIN [Concomitant]
     Dates: start: 20090108
  20. LEVOTHYROXINE SODIUM [Concomitant]
     Dates: start: 20080109
  21. AMIODARONE HCL [Concomitant]
     Dates: start: 20081105
  22. CLOPIDOGREL [Concomitant]
     Dates: start: 20081105
  23. SPIRONOLACTONE [Concomitant]
     Dates: start: 20081105
  24. POTASSIUM CHLORIDE [Concomitant]
     Dates: start: 20081025
  25. ANTIHEMORRHOIDALS FOR TOPICAL USE [Concomitant]
     Dates: start: 20081017
  26. CALMOSEPTINE                       /00244301/ [Concomitant]
     Dates: start: 20081014
  27. ASPIRIN [Concomitant]
     Dates: start: 20080914
  28. LANTUS [Concomitant]
     Dates: start: 20080905
  29. COENZYME Q10                       /03913201/ [Concomitant]
     Dates: start: 20080711
  30. LEVIMIR [Concomitant]
     Dates: start: 20080422
  31. NOVOLOG [Concomitant]
     Dates: start: 20080422
  32. POLYETHYLENE GLYCOL [Concomitant]
     Dates: start: 20080401
  33. FISH OIL [Concomitant]
     Dates: start: 20060101
  34. GARLIC [Concomitant]
     Dates: start: 20050101
  35. CALCIUM CITRATE [Concomitant]
     Dates: start: 19970101
  36. ASCORBIC ACID [Concomitant]
     Dates: start: 19970101
  37. MULTI-VITAMINS [Concomitant]
     Dates: start: 19850101

REACTIONS (1)
  - VENTRICULAR FIBRILLATION [None]
